FAERS Safety Report 4984842-X (Version None)
Quarter: 2006Q2

REPORT INFORMATION
  Report Type: 
  Country: None (occurrence: None)
  Receive Date: 20060426
  Receipt Date: 20060426
  Transmission Date: 20061013
  Serious: Yes (Other)
  Sender: FDA-Public Use
  Company Number: None

PATIENT
  Sex: Male
  Weight: 96.4 kg

DRUGS (2)
  1. GEMCITABINE [Suspect]
     Indication: BLADDER CANCER
     Dosage: 600MG/M2   D1+8 OF 21 DAY CYC   IV
     Route: 042
     Dates: start: 20060410, end: 20060417
  2. CAPECITABINE    500MG/M2 [Suspect]
     Indication: BLADDER CANCER
     Dosage: 500MG/M2   BID X 14 DAYS  PO
     Route: 048
     Dates: start: 20060410, end: 20060424

REACTIONS (1)
  - NEUTROPENIA [None]
